FAERS Safety Report 6269024-6 (Version None)
Quarter: 2009Q3

REPORT INFORMATION
  Report Type: 
  Country: None (occurrence: None)
  Receive Date: 20090715
  Receipt Date: 20090708
  Transmission Date: 20100115
  Serious: Yes (Congenital Anomaly, Other)
  Sender: FDA-Public Use
  Company Number: A0796909A

PATIENT
  Sex: Female

DRUGS (4)
  1. LAMICTAL [Suspect]
     Indication: EPILEPSY
     Dates: end: 20080816
  2. LAMOTRIGINE [Suspect]
     Indication: EPILEPSY
     Dosage: 150MG PER DAY
     Dates: start: 20080816
  3. TOPAMAX [Concomitant]
     Dosage: 200MG PER DAY
  4. ORAL CONTRACEPTIVE [Concomitant]

REACTIONS (2)
  - CONGENITAL INGUINAL HERNIA [None]
  - DRUG EXPOSURE DURING PREGNANCY [None]
